FAERS Safety Report 25632673 (Version 1)
Quarter: 2025Q3

REPORT INFORMATION
  Report Type: Spontaneous
  Country: US (occurrence: None)
  Receive Date: 20250731
  Receipt Date: 20250731
  Transmission Date: 20251020
  Serious: Yes (Life-Threatening, Hospitalization)
  Sender: FDA-CTU
  Company Number: None

PATIENT
  Age: 82 Year
  Sex: Female
  Weight: 100.7 kg

DRUGS (2)
  1. PRECEDEX [Suspect]
     Active Substance: DEXMEDETOMIDINE HYDROCHLORIDE
     Indication: Sedation
     Route: 041
     Dates: start: 20250729, end: 20250729
  2. SOTALOL [Suspect]
     Active Substance: SOTALOL

REACTIONS (3)
  - Bundle branch block left [None]
  - Torsade de pointes [None]
  - Cardio-respiratory arrest [None]

NARRATIVE: CASE EVENT DATE: 20250729
